FAERS Safety Report 25603298 (Version 1)
Quarter: 2025Q3

REPORT INFORMATION
  Report Type: Report from Study
  Country: US (occurrence: US)
  Receive Date: 20250724
  Receipt Date: 20250724
  Transmission Date: 20251020
  Serious: Yes (Other)
  Sender: ESTEVE
  Company Number: US-ESTEVE-2025-00110

PATIENT
  Age: 32 Year
  Sex: Female

DRUGS (21)
  1. LYSODREN [Suspect]
     Active Substance: MITOTANE
     Indication: Adrenal gland cancer
     Dates: start: 20240404
  2. LYSODREN [Suspect]
     Active Substance: MITOTANE
  3. SPIRONOLACT TAB 25MG [Concomitant]
  4. OXYCODONE TAB 10MG [Concomitant]
  5. ONDANSETRON [Concomitant]
     Active Substance: ONDANSETRON
  6. LOVENOX INJ 60/0.6ML [Concomitant]
  7. DOXAZOSIN TAB 2MG [Concomitant]
  8. VITAMIN D3 TAB 50000 UNT [Concomitant]
  9. PRAZOSIN HCL CAP 2MG [Concomitant]
  10. NEULASTA KIT 6MG/0.6M [Concomitant]
  11. METFORMIN [Concomitant]
     Active Substance: METFORMIN HYDROCHLORIDE
  12. LISINOPRIL TAB 40MG [Concomitant]
  13. LANTUS SOLOS INJ 100/ML [Concomitant]
  14. HYDROCORTISONE CRE 0.5% [Concomitant]
  15. ETOPOSIDE POW [Concomitant]
  16. DOXORUBICIN INJ 10/5ML [Concomitant]
  17. CISPLATIN POW [Concomitant]
  18. CARVEDILOL TAB 25MG [Concomitant]
  19. AMLODIPINE [Concomitant]
     Active Substance: AMLODIPINE BESYLATE
  20. ALBUTEROL AER HFA [Concomitant]
  21. ADMELOG SOLO INJ 100U/ML [Concomitant]

REACTIONS (4)
  - Thrombocytopenia [Not Recovered/Not Resolved]
  - Anaemia [Not Recovered/Not Resolved]
  - Product dose omission issue [Unknown]
  - Nausea [Unknown]
